FAERS Safety Report 6269293-2 (Version None)
Quarter: 2009Q3

REPORT INFORMATION
  Report Type: 
  Country: None (occurrence: None)
  Receive Date: 20090715
  Receipt Date: 20090708
  Transmission Date: 20100115
  Serious: Yes (Other)
  Sender: FDA-Public Use
  Company Number: PHHY2009BR28236

PATIENT
  Age: 54 Year
  Sex: Male

DRUGS (3)
  1. MYCOPHENOLIC ACID [Suspect]
     Indication: RENAL AND PANCREAS TRANSPLANT
  2. TACROLIMUS [Suspect]
     Indication: RENAL AND PANCREAS TRANSPLANT
  3. PREDNISONE TAB [Concomitant]
     Indication: RENAL AND PANCREAS TRANSPLANT

REACTIONS (4)
  - CHRONIC ALLOGRAFT NEPHROPATHY [None]
  - FOOT AMPUTATION [None]
  - RENAL GRAFT LOSS [None]
  - VASCULAR INSUFFICIENCY [None]
